FAERS Safety Report 5106302-8 (Version None)
Quarter: 2006Q3

REPORT INFORMATION
  Report Type: 
  Country: None (occurrence: None)
  Receive Date: 20060918
  Receipt Date: 20060907
  Transmission Date: 20061208
  Serious: Yes (Other)
  Sender: FDA-Public Use
  Company Number: US-JNJFOC-20060901978

PATIENT
  Sex: Female
  Weight: 133.81 kg

DRUGS (4)
  1. DURAGESIC-100 [Suspect]
     Indication: PAIN
     Route: 062
  2. ALLOPURINOL [Concomitant]
     Indication: GOUT
     Route: 048
  3. COLCHICINE [Concomitant]
     Indication: GOUT
     Route: 048
  4. NEURONTIN [Concomitant]
     Route: 048

REACTIONS (6)
  - APPLICATION SITE ERYTHEMA [None]
  - APPLICATION SITE IRRITATION [None]
  - APPLICATION SITE PRURITUS [None]
  - CARDIAC FAILURE CONGESTIVE [None]
  - HYPERCHOLESTEROLAEMIA [None]
  - PULMONARY OEDEMA [None]
